FAERS Safety Report 19121177 (Version 3)
Quarter: 2021Q3

REPORT INFORMATION
  Report Type: Report from Study
  Country: US (occurrence: US)
  Receive Date: 20210412
  Receipt Date: 20210927
  Transmission Date: 20211014
  Serious: Yes (Other)
  Sender: FDA-Public Use
  Company Number: US-EMD SERONO-9214089

PATIENT
  Age: 62 Year
  Sex: Male

DRUGS (1)
  1. REBIF [Suspect]
     Active Substance: INTERFERON BETA-1A
     Indication: MULTIPLE SCLEROSIS
     Dosage: MANUAL
     Route: 058
     Dates: start: 20060104

REACTIONS (9)
  - Injection site scar [Unknown]
  - Needle issue [Unknown]
  - Musculoskeletal discomfort [Unknown]
  - Injection site induration [Unknown]
  - Salivary gland calculus [Unknown]
  - Carpal tunnel syndrome [Recovering/Resolving]
  - Dyspnoea [Unknown]
  - Joint range of motion decreased [Unknown]
  - Trigger finger [Unknown]

NARRATIVE: CASE EVENT DATE: 202103
